FAERS Safety Report 5261703-2 (Version None)
Quarter: 2007Q1

REPORT INFORMATION
  Report Type: 
  Country: None (occurrence: None)
  Receive Date: 20061208
  Receipt Date: 20060517
  Transmission Date: 20070707
  Serious: Yes (Hospitalization, Disabling)
  Sender: FDA-Public Use
  Company Number: USA-2006-0024253

PATIENT
  Age: 36 Year
  Sex: Female
  Weight: 127 kg

DRUGS (1)
  1. OXYCONTIN [Suspect]
     Indication: DRUG USE FOR UNKNOWN INDICATION
     Dosage: 80 MG, Q12H, ORAL
     Route: 048

REACTIONS (1)
  - DEPRESSION [None]
